FAERS Safety Report 8952875 (Version 2)
Quarter: 2012Q4

REPORT INFORMATION
  Report Type: 
  Country: US (occurrence: US)
  Receive Date: 20121203
  Receipt Date: 20121210
  Transmission Date: 20130627
  Serious: Yes (Other)
  Sender: FDA-Public Use
  Company Number: US-GILEAD-2012-0065153

PATIENT
  Sex: Female

DRUGS (1)
  1. LETAIRIS [Suspect]
     Indication: PULMONARY ARTERIAL HYPERTENSION
     Dosage: 10 mg, QD
     Route: 048
     Dates: start: 20090602

REACTIONS (6)
  - Pulmonary fibrosis [Unknown]
  - Atrial fibrillation [Unknown]
  - Oxygen saturation decreased [Unknown]
  - Feeling jittery [Unknown]
  - Dyspnoea [Unknown]
  - Oedema peripheral [Unknown]
